FAERS Safety Report 9279131 (Version 1)
Quarter: 2012Q4

REPORT INFORMATION
  Report Type: Spontaneous
  Country: US (occurrence: None)
  Receive Date: 20120925
  Receipt Date: 20120925
  Transmission Date: 20130627
  Serious: Yes (Other)
  Sender: FDA-Public Use
  Company Number: 2012S1000888

PATIENT
  Age: 76 Year
  Sex: Female

DRUGS (7)
  1. LIVALO (PITAVASTATIN) TABLETS 2 MG [Suspect]
     Indication: CHOLESTEROL HIGH
     Route: 048
     Dates: start: 20120813, end: 20120813
  2. NORVASC [Concomitant]
  3. NITROGLYCERIN [Concomitant]
  4. PLAVIX [Concomitant]
  5. ASPIRIN [Concomitant]
  6. ZANTAC [Concomitant]
  7. CELEBREX [Concomitant]

REACTIONS (7)
  - Myocardial infarction [None]
  - Back pain [None]
  - Hyperhidrosis [None]
  - Dizziness [None]
  - Tremor [None]
  - Dyspnoea [None]
  - Vomiting [None]
